FAERS Safety Report 18214275 (Version 2)
Quarter: 2020Q3

REPORT INFORMATION
  Report Type: Spontaneous
  Country: JP (occurrence: JP)
  Receive Date: 20200831
  Receipt Date: 20200904
  Transmission Date: 20201103
  Serious: Yes (Other)
  Sender: FDA-Public Use
  Company Number: JP-PFIZER INC-2020332805

PATIENT
  Age: 71 Year
  Sex: Male

DRUGS (3)
  1. DOCETAXEL. [Suspect]
     Active Substance: DOCETAXEL
     Indication: AMELOBLASTIC CARCINOMA
     Dosage: 8 MG/M2,  (INFUSED OVER 2 H)REPEATED FIVE TIMES FOR A TOTAL DOSE OF 60 MG IN THE RIGHT (AFFECTED) SI
     Route: 013
  2. CISPLATIN. [Suspect]
     Active Substance: CISPLATIN
     Indication: AMELOBLASTIC CARCINOMA
     Dosage: 40 MG/M2, CYCLIC (ONCE A WEEK; INFUSED OVER 5 H VIA A CATHETER; ADMINISTERED SEVEN TIMES ON BOTH SID
     Route: 013
  3. DETOXOL [Concomitant]
     Dosage: UNK (8 G/M2 OVER 7 H)
     Route: 040

REACTIONS (6)
  - Optic nerve disorder [Unknown]
  - Neutropenia [Recovered/Resolved]
  - Retinopathy [Unknown]
  - Mucosal inflammation [Recovered/Resolved]
  - Skin atrophy [Unknown]
  - Dermatitis [Recovered/Resolved]
